FAERS Safety Report 7557377-8 (Version None)
Quarter: 2011Q2

REPORT INFORMATION
  Report Type: 
  Country: None (occurrence: None)
  Receive Date: 20110620
  Receipt Date: 20110613
  Transmission Date: 20111010
  Serious: Yes (Death)
  Sender: FDA-Public Use
  Company Number: PHHY2011CZ53562

PATIENT
  Age: 37 Year
  Sex: Female

DRUGS (2)
  1. ZOMETA [Suspect]
     Indication: METASTASES TO BONE
     Dates: start: 20080501
  2. FENTANYL-100 [Concomitant]

REACTIONS (2)
  - BONE DISORDER [None]
  - DEATH [None]
